FAERS Safety Report 7385313-6 (Version None)
Quarter: 2011Q1

REPORT INFORMATION
  Report Type: 
  Country: None (occurrence: None)
  Receive Date: 20110330
  Receipt Date: 20100706
  Transmission Date: 20110831
  Serious: No
  Sender: FDA-Public Use
  Company Number: US-MYLANLABS-2010S1011922

PATIENT
  Age: 70 Year
  Sex: Female
  Weight: 50.35 kg

DRUGS (4)
  1. AMBIEN [Concomitant]
     Indication: INSOMNIA
     Dates: start: 20090101
  2. EMSAM [Suspect]
     Indication: DEPRESSION
     Route: 062
     Dates: start: 20100601, end: 20100704
  3. ATIVAN [Concomitant]
     Indication: ANXIETY
     Dates: start: 20090101
  4. ASPIRIN [Concomitant]
     Indication: RHEUMATOID ARTHRITIS

REACTIONS (4)
  - HYPERHIDROSIS [None]
  - HEADACHE [None]
  - PALPITATIONS [None]
  - MUSCULOSKELETAL STIFFNESS [None]
